FAERS Safety Report 23660924 (Version 1)
Quarter: 2024Q1

REPORT INFORMATION
  Report Type: Spontaneous
  Country: ES (occurrence: ES)
  Receive Date: 20240322
  Receipt Date: 20240322
  Transmission Date: 20240410
  Serious: Yes (Hospitalization, Other)
  Sender: FDA-Public Use
  Company Number: ES-TEVA-VS-3173104

PATIENT
  Age: 71 Year
  Sex: Female

DRUGS (3)
  1. TACROLIMUS [Suspect]
     Active Substance: TACROLIMUS
     Indication: Immunosuppressant drug therapy
     Route: 065
     Dates: start: 202010
  2. MYCOPHENOLIC ACID [Suspect]
     Active Substance: MYCOPHENOLIC ACID
     Indication: Immunosuppressant drug therapy
     Route: 065
     Dates: start: 202010, end: 202012
  3. LEVOFLOXACIN [Concomitant]
     Active Substance: LEVOFLOXACIN
     Indication: Mediastinitis
     Route: 048
     Dates: start: 2021

REACTIONS (3)
  - Myelosuppression [Unknown]
  - Mediastinitis [Recovered/Resolved]
  - Rhodococcus infection [Recovered/Resolved]

NARRATIVE: CASE EVENT DATE: 20200101
